FAERS Safety Report 9307887 (Version 1)
Quarter: 2013Q2

REPORT INFORMATION
  Report Type: Spontaneous
  Country: US (occurrence: US)
  Receive Date: 20130524
  Receipt Date: 20130524
  Transmission Date: 20140414
  Serious: Yes (Other)
  Sender: FDA-Public Use
  Company Number: US-AMGEN-USASP2013034763

PATIENT
  Age: 76 Year
  Sex: Female

DRUGS (3)
  1. PROLIA [Suspect]
     Indication: BONE DISORDER
     Dosage: UNK UNK, Q12MO
     Dates: start: 2012
  2. PRILOSEC [Concomitant]
     Dosage: UNK UNK, AS NECESSARY
  3. CALCIUM WITH VITAMIN D [Concomitant]

REACTIONS (4)
  - Bronchitis [Recovering/Resolving]
  - Asthenia [Not Recovered/Not Resolved]
  - Inappropriate schedule of drug administration [Unknown]
  - Malaise [Unknown]
